FAERS Safety Report 6160086-3 (Version None)
Quarter: 2009Q2

REPORT INFORMATION
  Report Type: 
  Country: None (occurrence: None)
  Receive Date: 20090420
  Receipt Date: 20090417
  Transmission Date: 20091009
  Serious: Yes (Other)
  Sender: FDA-Public Use
  Company Number: A0779443A

PATIENT
  Sex: Female

DRUGS (1)
  1. NICORETTE [Suspect]
     Indication: DRUG USE FOR UNKNOWN INDICATION
     Dosage: 10GUM PER DAY
     Route: 002

REACTIONS (3)
  - ASTHMA [None]
  - INTENTIONAL DRUG MISUSE [None]
  - SINUS POLYP [None]
